APPROVED DRUG PRODUCT: ISOETHARINE HYDROCHLORIDE
Active Ingredient: ISOETHARINE HYDROCHLORIDE
Strength: 1%
Dosage Form/Route: SOLUTION;INHALATION
Application: A085889 | Product #001
Applicant: PARKE DAVIS PHARMACEUTICAL RESEARCH DIV WARNER LAMBERT CO
Approved: Approved Prior to Jan 1, 1982 | RLD: No | RS: No | Type: DISCN